FAERS Safety Report 14327924 (Version 4)
Quarter: 2024Q2

REPORT INFORMATION
  Report Type: Report from Study
  Country: US (occurrence: US)
  Receive Date: 20171227
  Receipt Date: 20240610
  Transmission Date: 20240715
  Serious: Yes (Other)
  Sender: FDA-Public Use
  Company Number: US-UCBSA-2017051995

PATIENT
  Age: 36 Year
  Sex: Female
  Weight: 63.5 kg

DRUGS (14)
  1. CERTOLIZUMAB PEGOL [Suspect]
     Active Substance: CERTOLIZUMAB PEGOL
     Indication: Crohn^s disease
     Dosage: 400 MG, MONTHLY (QM)
     Dates: start: 20141231, end: 20170719
  2. CERTOLIZUMAB PEGOL [Suspect]
     Active Substance: CERTOLIZUMAB PEGOL
     Indication: Ankylosing spondylitis
  3. DIETARY SUPPLEMENT [Concomitant]
     Active Substance: DIETARY SUPPLEMENT
     Indication: Product used for unknown indication
     Dosage: 5 ML, WEEKLY (QW)
     Route: 048
     Dates: start: 20161028, end: 20170719
  4. FOLIC ACID [Concomitant]
     Active Substance: FOLIC ACID
     Indication: Product used for unknown indication
     Dosage: 5 MG, ONCE DAILY (QD)
     Route: 048
     Dates: start: 20161006, end: 20170719
  5. PRENATAL MULTIVITAMIN + DHA [Concomitant]
     Indication: Product used for unknown indication
     Dosage: 1 DF, ONCE DAILY (QD)
     Route: 048
     Dates: start: 20161010, end: 20170719
  6. MESALAMINE [Concomitant]
     Active Substance: MESALAMINE
     Indication: Crohn^s disease
     Dosage: 4000 MILLIGRAM, EV 4 WEEKS
     Route: 048
     Dates: start: 20161006, end: 20170719
  7. SUMATRIPTAN SUCCINATE [Concomitant]
     Active Substance: SUMATRIPTAN SUCCINATE
     Indication: Migraine
     Dosage: UNK
     Route: 048
     Dates: start: 20161006, end: 20170719
  8. SYNTHROID [Concomitant]
     Active Substance: LEVOTHYROXINE SODIUM
     Indication: Hypothyroidism
     Dosage: 0.05 MG, ONCE DAILY (QD)
     Route: 048
     Dates: start: 20161006, end: 20161103
  9. SYNTHROID [Concomitant]
     Active Substance: LEVOTHYROXINE SODIUM
     Dosage: 0.08 MILLIGRAM, ONCE DAILY (QD)
     Route: 048
     Dates: start: 20161114, end: 20161130
  10. SYNTHROID [Concomitant]
     Active Substance: LEVOTHYROXINE SODIUM
     Dosage: 0.1 MILLIGRAM, ONCE DAILY (QD)
     Route: 048
     Dates: start: 20161201, end: 20161228
  11. SYNTHROID [Concomitant]
     Active Substance: LEVOTHYROXINE SODIUM
     Dosage: 0.13 MILLIGRAM, ONCE DAILY (QD)
     Route: 048
     Dates: start: 20161229, end: 20170719
  12. COBAMAMIDE [Concomitant]
     Active Substance: COBAMAMIDE
     Indication: Product used for unknown indication
     Dosage: 1 DF, ONCE DAILY (QD)
     Route: 048
     Dates: start: 20170105, end: 20170719
  13. VITAMIN B6 [Concomitant]
     Active Substance: PYRIDOXINE HYDROCHLORIDE
     Indication: Product used for unknown indication
     Dosage: 1 DOSAGE FORM, ONCE DAILY (QD)
     Route: 048
     Dates: start: 20170105, end: 20170719
  14. ERGOCALCIFEROL [Concomitant]
     Active Substance: ERGOCALCIFEROL
     Indication: Product used for unknown indication
     Dosage: 2000 IU, ONCE DAILY (QD)
     Route: 048
     Dates: start: 20170105, end: 20170719

REACTIONS (5)
  - Vaginal haemorrhage [Unknown]
  - Respiratory tract infection [Recovered/Resolved]
  - Vaginal infection [Recovered/Resolved]
  - Maternal exposure during pregnancy [Unknown]
  - Maternal exposure before pregnancy [Unknown]

NARRATIVE: CASE EVENT DATE: 20161026
